FAERS Safety Report 6713538-9 (Version None)
Quarter: 2010Q2

REPORT INFORMATION
  Report Type: 
  Country: None (occurrence: None)
  Receive Date: 20100503
  Receipt Date: 20100420
  Transmission Date: 20101027
  Serious: Yes (Hospitalization)
  Sender: FDA-Public Use
  Company Number: 230344J09GBR

PATIENT
  Age: 39 Year
  Sex: Female

DRUGS (4)
  1. REBIF [Suspect]
     Dosage: 8.8 MCG, 44 MCG
     Dates: end: 20100101
  2. REBIF [Suspect]
     Dosage: 8.8 MCG, 44 MCG
     Dates: start: 20091207, end: 20100122
  3. COCODAMOL (PANADEINE CO) [Concomitant]
  4. ANTISEPTIC (ANTISEPTICS) [Concomitant]

REACTIONS (13)
  - ATOPY [None]
  - BLOOD POTASSIUM INCREASED [None]
  - GAMMA-GLUTAMYLTRANSFERASE INCREASED [None]
  - HEADACHE [None]
  - HEPATIC ENZYME INCREASED [None]
  - INJECTION SITE ERYTHEMA [None]
  - INJECTION SITE HAEMATOMA [None]
  - INJECTION SITE REACTION [None]
  - MALAISE [None]
  - MUSCULOSKELETAL CHEST PAIN [None]
  - NASOPHARYNGITIS [None]
  - OROPHARYNGEAL PAIN [None]
  - PRURITUS [None]
